FAERS Safety Report 5327668-X (Version None)
Quarter: 2007Q2

REPORT INFORMATION
  Report Type: 
  Country: None (occurrence: None)
  Receive Date: 20070517
  Receipt Date: 20070515
  Transmission Date: 20071010
  Serious: Yes (Hospitalization)
  Sender: FDA-Public Use
  Company Number: IT-BRISTOL-MYERS SQUIBB COMPANY-13779772

PATIENT
  Age: 86 Year
  Sex: Female

DRUGS (6)
  1. KARVEA TABS 300 MG [Suspect]
     Indication: HYPERTENSION
     Route: 048
     Dates: start: 20000101, end: 20070504
  2. ALDACTONE [Suspect]
     Indication: CARDIAC FAILURE
     Dosage: 100 MG
     Route: 048
     Dates: start: 20070427, end: 20070504
  3. DIGOXIN [Concomitant]
     Indication: ATRIAL FIBRILLATION
  4. LASIX [Concomitant]
     Indication: CARDIAC FAILURE
  5. COUMADIN [Concomitant]
     Indication: ATRIAL FIBRILLATION
  6. FENOFIBRATE [Concomitant]

REACTIONS (3)
  - ABDOMINAL PAIN UPPER [None]
  - BRADYCARDIA [None]
  - HYPERKALAEMIA [None]
